FAERS Safety Report 12010727 (Version 1)
Quarter: 2016Q1

REPORT INFORMATION
  Report Type: Spontaneous
  Country: ES (occurrence: ES)
  Receive Date: 20160205
  Receipt Date: 20160205
  Transmission Date: 20160526
  Serious: Yes (Hospitalization)
  Sender: FDA-Public Use
  Company Number: ES-TEVA-632515ISR

PATIENT
  Age: 59 Year
  Sex: Male

DRUGS (5)
  1. OXCARBAZEPINE. [Suspect]
     Active Substance: OXCARBAZEPINE
     Dosage: 7200 MILLIGRAM DAILY;
  2. OXCARBAZEPINE. [Suspect]
     Active Substance: OXCARBAZEPINE
  3. LEVETIRACETAM. [Concomitant]
     Active Substance: LEVETIRACETAM
     Dosage: 7500 MILLIGRAM DAILY;
  4. PHENYTOIN. [Concomitant]
     Active Substance: PHENYTOIN
     Dosage: 700 MILLIGRAM DAILY;
  5. AMITRIPTYLINE [Concomitant]
     Active Substance: AMITRIPTYLINE
     Dosage: 50 MILLIGRAM DAILY;

REACTIONS (6)
  - Neurotoxicity [Recovered/Resolved]
  - Dizziness [Recovered/Resolved]
  - Gait disturbance [Recovered/Resolved]
  - Ataxia [Recovered/Resolved]
  - Nystagmus [Not Recovered/Not Resolved]
  - Toxicity to various agents [Recovered/Resolved]
